FAERS Safety Report 5622379-5 (Version None)
Quarter: 2008Q1

REPORT INFORMATION
  Report Type: 
  Country: None (occurrence: None)
  Receive Date: 20080211
  Receipt Date: 20080130
  Transmission Date: 20080703
  Serious: Yes (Other)
  Sender: FDA-Public Use
  Company Number: US-PFIZER INC-2007074905

PATIENT
  Sex: Female
  Weight: 61.2 kg

DRUGS (6)
  1. CHANTIX [Suspect]
     Indication: SMOKING CESSATION THERAPY
     Dates: start: 20070526, end: 20070831
  2. METHYLPREDNISOLONE [Concomitant]
  3. PAROXETINE HYDROCHLORIDE [Concomitant]
  4. VALTREX [Concomitant]
  5. GABAPENTIN [Concomitant]
  6. HYDROCODONE BITARTRATE [Concomitant]

REACTIONS (11)
  - ARTHRALGIA [None]
  - FIBROMYALGIA [None]
  - FLATULENCE [None]
  - HEADACHE [None]
  - HERPES ZOSTER [None]
  - INFLUENZA LIKE ILLNESS [None]
  - INSOMNIA [None]
  - MYALGIA [None]
  - NEUROPATHY PERIPHERAL [None]
  - PAIN [None]
  - STOMACH DISCOMFORT [None]
